FAERS Safety Report 7819628-1 (Version None)
Quarter: 2011Q4

REPORT INFORMATION
  Report Type: 
  Country: None (occurrence: None)
  Receive Date: 20111018
  Receipt Date: 20111004
  Transmission Date: 20120403
  Serious: Yes (Hospitalization)
  Sender: FDA-Public Use
  Company Number: US-MYLANLABS-2011S1021025

PATIENT
  Age: 6 Decade
  Sex: Female

DRUGS (3)
  1. GEMZAR [Suspect]
     Indication: LUNG SQUAMOUS CELL CARCINOMA STAGE UNSPECIFIED
     Dosage: 1000 MG/M2 ON DAYS 1 AND 8, EVERY 3 WEEKS FOR 4 CYCLES
     Route: 065
  2. CARBOPLATIN [Suspect]
     Indication: LUNG SQUAMOUS CELL CARCINOMA STAGE UNSPECIFIED
     Route: 065
  3. ZOLEDRONIC ACID [Concomitant]
     Dosage: 4MG EVERY 3 WEEKS
     Route: 042

REACTIONS (3)
  - TRANSAMINASES INCREASED [None]
  - HYPOALBUMINAEMIA [None]
  - ORGANISING PNEUMONIA [None]
